FAERS Safety Report 26139311 (Version 1)
Quarter: 2025Q4

REPORT INFORMATION
  Report Type: Spontaneous
  Country: CA (occurrence: CA)
  Receive Date: 20251210
  Receipt Date: 20251210
  Transmission Date: 20260119
  Serious: Yes (Other)
  Sender: APOTEX
  Company Number: CA-PGRTD-E2B_08200057

PATIENT
  Sex: Male

DRUGS (1)
  1. METFORMIN HYDROCHLORIDE [Suspect]
     Active Substance: METFORMIN HYDROCHLORIDE
     Indication: Product used for unknown indication
     Route: 065

REACTIONS (3)
  - Blood glucose increased [Unknown]
  - Product use complaint [Unknown]
  - Drug ineffective [Unknown]
